FAERS Safety Report 6755542-0 (Version None)
Quarter: 2010Q2

REPORT INFORMATION
  Report Type: 
  Country: None (occurrence: None)
  Receive Date: 20100604
  Receipt Date: 20100526
  Transmission Date: 20101027
  Serious: Yes (Other)
  Sender: FDA-Public Use
  Company Number: US-JNJFOC-20100510486

PATIENT
  Sex: Female
  Weight: 83.92 kg

DRUGS (9)
  1. REMICADE [Suspect]
     Indication: RHEUMATOID ARTHRITIS
     Dosage: EVERY 6-8 WEEKS
     Route: 042
  2. METHOTREXATE [Concomitant]
     Dosage: 10 TABS WEEKLY, ON IT FOR ABOUT 4 YEARS
  3. HYDROXYCHLOROQUINE SULFATE [Concomitant]
  4. WATER PILL NOS [Concomitant]
  5. METFORMIN [Concomitant]
  6. CALCIUM CARBONATE [Concomitant]
  7. VITAMIN TAB [Concomitant]
  8. FOLIC ACID [Concomitant]
  9. THYROID THERAPY [Concomitant]

REACTIONS (1)
  - DENTAL CARIES [None]
